FAERS Safety Report 4390265-7 (Version None)
Quarter: 2004Q2

REPORT INFORMATION
  Report Type: 
  Country: None (occurrence: None)
  Receive Date: 20040630
  Receipt Date: 20040607
  Transmission Date: 20050107
  Serious: Yes (Life-Threatening)
  Sender: FDA-Public Use
  Company Number: 8156

PATIENT
  Age: 13 Year
  Sex: Female

DRUGS (4)
  1. METHOTREXATE [Suspect]
     Indication: BONE SARCOMA
     Dosage: 16 G ONCE IV
     Route: 042
     Dates: start: 20040528, end: 20040528
  2. DEXAMETHASONE [Concomitant]
  3. TROPISETRON [Concomitant]
  4. FUROSEMIDE [Concomitant]

REACTIONS (12)
  - ABDOMINAL PAIN [None]
  - BLOOD PRESSURE DECREASED [None]
  - DEPRESSED LEVEL OF CONSCIOUSNESS [None]
  - DIARRHOEA [None]
  - HEADACHE [None]
  - INFUSION RELATED REACTION [None]
  - NAUSEA [None]
  - PHARMACEUTICAL PRODUCT COMPLAINT [None]
  - SENSATION OF FOREIGN BODY [None]
  - SWELLING FACE [None]
  - SYNCOPE VASOVAGAL [None]
  - VOMITING [None]
